FAERS Safety Report 9124330 (Version 1)
Quarter: 2013Q1

REPORT INFORMATION
  Report Type: Spontaneous
  Country: US (occurrence: US)
  Receive Date: 20130227
  Receipt Date: 20130227
  Transmission Date: 20140127
  Serious: No
  Sender: FDA-Public Use
  Company Number: US-MYLANLABS-2013S1000606

PATIENT
  Age: 51 Year
  Sex: Female
  Weight: 58.06 kg

DRUGS (3)
  1. MONTELUKAST SODIUM [Suspect]
     Indication: ASTHMA
     Route: 048
     Dates: start: 201211, end: 201212
  2. TRI-CYCLEN LO [Concomitant]
     Indication: CONTRACEPTION
     Dosage: 1 TABLET
     Route: 048
  3. ALBUTEROL INHALER [Concomitant]
     Indication: ASTHMA
     Dosage: DOSING:  2 PUFFS Q4H, PRN
     Route: 055

REACTIONS (2)
  - Drug ineffective [Recovered/Resolved]
  - Asthma [Recovered/Resolved]
